FAERS Safety Report 5636467-0 (Version None)
Quarter: 2008Q1

REPORT INFORMATION
  Report Type: 
  Country: None (occurrence: None)
  Receive Date: 20080225
  Receipt Date: 20080214
  Transmission Date: 20080703
  Serious: Yes (Hospitalization)
  Sender: FDA-Public Use
  Company Number: SE-BRISTOL-MYERS SQUIBB COMPANY-14086086

PATIENT
  Age: 64 Year
  Sex: Male

DRUGS (1)
  1. ENDOXAN [Suspect]
     Indication: PROSTATE CANCER

REACTIONS (3)
  - C-REACTIVE PROTEIN INCREASED [None]
  - COUGH [None]
  - PYREXIA [None]
